FAERS Safety Report 9232253 (Version 5)
Quarter: 2013Q4

REPORT INFORMATION
  Report Type: Spontaneous
  Country: US (occurrence: US)
  Receive Date: 20130415
  Receipt Date: 20131004
  Transmission Date: 20140711
  Serious: No
  Sender: FDA-Public Use
  Company Number: US-009507513-1304USA006951

PATIENT
  Sex: Male

DRUGS (4)
  1. MIRALAX [Suspect]
     Indication: PRODUCT USED FOR UNKNOWN INDICATION
     Dosage: UNK, BID
     Route: 048
  2. MIRALAX [Suspect]
     Indication: MEDICAL OBSERVATION
     Dosage: UNK, BID
     Route: 048
  3. MIRALAX [Suspect]
     Dosage: UNK, BID
     Route: 048
  4. MIRALAX [Suspect]
     Dosage: UNK, BID
     Route: 048

REACTIONS (8)
  - Gastrointestinal pain [Not Recovered/Not Resolved]
  - Muscle spasms [Unknown]
  - Unevaluable event [Not Recovered/Not Resolved]
  - Malaise [Unknown]
  - Inappropriate schedule of drug administration [Unknown]
  - Incorrect drug administration duration [Unknown]
  - Diarrhoea [Unknown]
  - Abdominal discomfort [Unknown]
